FAERS Safety Report 7308040-X (Version None)
Quarter: 2011Q1

REPORT INFORMATION
  Report Type: 
  Country: None (occurrence: None)
  Receive Date: 20110223
  Receipt Date: 20100921
  Transmission Date: 20110831
  Serious: Yes (Death, Other)
  Sender: FDA-Public Use
  Company Number: US-BAYER-201032483NA

PATIENT
  Sex: Female
  Weight: 90.703 kg

DRUGS (15)
  1. OLUX [Concomitant]
     Indication: PSORIASIS
  2. NUVARING [Concomitant]
     Dosage: UNK UNK, UNK
     Dates: start: 20061119, end: 20070202
  3. OCELLA [Suspect]
     Dosage: UNK UNK, UNK
     Route: 048
     Dates: start: 20090111, end: 20090313
  4. ASCORBIC ACID [Concomitant]
  5. YASMIN [Suspect]
     Indication: ACNE
     Dosage: UNK UNK, UNK
     Route: 048
     Dates: start: 20041215, end: 20060929
  6. YASMIN [Suspect]
     Dosage: UNK UNK, UNK
     Route: 048
     Dates: start: 20071104, end: 20080328
  7. IBUPROFEN [Concomitant]
  8. YASMIN [Suspect]
  9. LUXIQ [Concomitant]
     Indication: PSORIASIS
  10. YAZ [Suspect]
     Indication: PRODUCT USED FOR UNKNOWN INDICATION
     Route: 048
  11. YASMIN [Suspect]
     Dosage: UNK UNK, UNK
     Route: 048
     Dates: start: 20070220, end: 20070805
  12. OCELLA [Suspect]
     Route: 048
     Dates: start: 20080831
  13. OCELLA [Suspect]
     Indication: ACNE
     Dosage: UNK UNK, UNK
     Route: 048
     Dates: start: 20080802
  14. OCELLA [Suspect]
     Route: 048
     Dates: start: 20081121
  15. NAPROXEN [Concomitant]

REACTIONS (14)
  - PULMONARY EMBOLISM [None]
  - BENIGN HEPATIC NEOPLASM [None]
  - THROMBOPHLEBITIS [None]
  - MYOCARDIAL INFARCTION [None]
  - HYPERTENSION [None]
  - DEEP VEIN THROMBOSIS [None]
  - HEPATIC ADENOMA [None]
  - CEREBRAL HAEMORRHAGE [None]
  - CHOLECYSTITIS [None]
  - CHOLELITHIASIS [None]
  - CHOLESTEROSIS [None]
  - CEREBRAL THROMBOSIS [None]
  - EMBOLISM ARTERIAL [None]
  - CHOLECYSTITIS CHRONIC [None]
